FAERS Safety Report 7683963-0 (Version None)
Quarter: 2011Q3

REPORT INFORMATION
  Report Type: 
  Country: None (occurrence: None)
  Receive Date: 20110815
  Receipt Date: 20110803
  Transmission Date: 20111222
  Serious: Yes (Other)
  Sender: FDA-Public Use
  Company Number: US-ROCHE-794908

PATIENT
  Sex: Female

DRUGS (1)
  1. ACCUTANE [Suspect]
     Route: 065
     Dates: start: 19830501, end: 19830901

REACTIONS (3)
  - GASTROINTESTINAL FISTULA [None]
  - ARTHRALGIA [None]
  - CROHN'S DISEASE [None]
